FAERS Safety Report 9350650 (Version 1)
Quarter: 2013Q2

REPORT INFORMATION
  Report Type: Spontaneous
  Country: US (occurrence: None)
  Receive Date: 20130613
  Receipt Date: 20130613
  Transmission Date: 20140414
  Serious: Yes (Hospitalization)
  Sender: FDA-Public Use
  Company Number: None

PATIENT
  Age: 77 Year
  Sex: Male
  Weight: 107.9 kg

DRUGS (1)
  1. MOXIFLOXACIN [Suspect]
     Indication: PNEUMONIA
     Route: 048
     Dates: start: 20130525, end: 20130531

REACTIONS (3)
  - Encephalopathy [None]
  - Azotaemia [None]
  - Tubulointerstitial nephritis [None]
